FAERS Safety Report 5032852-9 (Version None)
Quarter: 2006Q2

REPORT INFORMATION
  Report Type: 
  Country: None (occurrence: None)
  Receive Date: 20060622
  Receipt Date: 20060330
  Transmission Date: 20061013
  Serious: Yes (Other)
  Sender: FDA-Public Use
  Company Number: FR-GLAXOSMITHKLINE-B0419221A

PATIENT
  Age: 22 Year
  Sex: Female

DRUGS (5)
  1. COMBIVIR [Suspect]
     Route: 048
     Dates: start: 20060216, end: 20060307
  2. TELZIR [Suspect]
     Dosage: 700MG TWICE PER DAY
     Route: 048
     Dates: start: 20060216, end: 20060307
  3. NORVIR [Suspect]
     Dosage: 100MG TWICE PER DAY
     Route: 048
     Dates: start: 20060216, end: 20060307
  4. ORAL CONTRACEPTION [Concomitant]
     Indication: CONTRACEPTION
     Route: 048
  5. VIBRAMYCINE [Concomitant]
     Indication: INFECTION PROPHYLAXIS
     Dosage: 200MG PER DAY
     Route: 048
     Dates: start: 20060216, end: 20060222

REACTIONS (7)
  - ABDOMINAL PAIN [None]
  - ALANINE AMINOTRANSFERASE INCREASED [None]
  - ASPARTATE AMINOTRANSFERASE INCREASED [None]
  - CYTOLYTIC HEPATITIS [None]
  - DIARRHOEA [None]
  - DRUG ADMINISTRATION ERROR [None]
  - VOMITING [None]
